FAERS Safety Report 5244321-1 (Version None)
Quarter: 2007Q1

REPORT INFORMATION
  Report Type: 
  Country: None (occurrence: None)
  Receive Date: 20070222
  Receipt Date: 20070219
  Transmission Date: 20070707
  Serious: Yes (Other)
  Sender: FDA-Public Use
  Company Number: GB-BRISTOL-MYERS SQUIBB COMPANY-13607387

PATIENT
  Sex: Female

DRUGS (2)
  1. KENALOG-40 [Suspect]
     Indication: CARPAL TUNNEL SYNDROME
     Route: 030
  2. ISTIN [Concomitant]
     Indication: HYPERTENSION

REACTIONS (5)
  - DRUG ADMINISTRATION ERROR [None]
  - INCORRECT ROUTE OF DRUG ADMINISTRATION [None]
  - ISCHAEMIA [None]
  - LIMB INJURY [None]
  - NECROSIS [None]
